FAERS Safety Report 20410565 (Version 1)
Quarter: 2022Q1

REPORT INFORMATION
  Report Type: Spontaneous
  Country: NO (occurrence: NO)
  Receive Date: 20220201
  Receipt Date: 20220201
  Transmission Date: 20220424
  Serious: Yes (Other)
  Sender: FDA-Public Use
  Company Number: NO-SUN PHARMACEUTICAL INDUSTRIES LTD-2021RR-323303

PATIENT
  Weight: 4 kg

DRUGS (1)
  1. MISOPROSTOL [Suspect]
     Active Substance: MISOPROSTOL
     Indication: Labour induction
     Dosage: FOUR TABLETS (OF 25 UG) WITH TWO HOURS IN BETWEEN
     Route: 064

REACTIONS (4)
  - Contraindicated product administered [Recovered/Resolved]
  - Bradycardia foetal [Recovered/Resolved]
  - Foetal distress syndrome [Recovered/Resolved]
  - Tachycardia foetal [Recovered/Resolved]
